FAERS Safety Report 8853739 (Version 2)
Quarter: 2013Q2

REPORT INFORMATION
  Report Type: Spontaneous
  Country: US (occurrence: None)
  Receive Date: 20120426
  Receipt Date: 20120703
  Transmission Date: 20140414
  Serious: Yes (Other)
  Sender: FDA-Public Use
  Company Number: PHEH2012US004184

PATIENT
  Age: 48 Year
  Sex: Female

DRUGS (10)
  1. GILENYA [Suspect]
     Indication: RELAPSING-REMITTING MULTIPLE SCLEROSIS
     Route: 048
     Dates: start: 20120125, end: 20120210
  2. ALBUTEROL (SALBUTAMOL) [Concomitant]
  3. ADVAIR (FLUTICASONE PROPIONATE, SALMETEROL XINAFOATE) [Concomitant]
  4. LUNESTA (ESZOPICLONE) [Concomitant]
  5. BACLOFEN (BACLOFEN) [Concomitant]
  6. ANTIVERT (MECLOZINE HYDROCHLORIDE) [Concomitant]
  7. VALIUM (DIAZEPAM) [Concomitant]
  8. LEVAQUIN (LEVOFLOXACIN) [Concomitant]
  9. TRAVANIDINE (TRAVANIDINE) [Concomitant]
  10. LEXAPRO (ESCITALOPRAM OXALATE) [Concomitant]

REACTIONS (4)
  - Feeling abnormal [None]
  - Dizziness [None]
  - Sinusitis [None]
  - Urinary tract infection [None]
